FAERS Safety Report 5703554-8 (Version None)
Quarter: 2008Q2

REPORT INFORMATION
  Report Type: 
  Country: None (occurrence: None)
  Receive Date: 20080409
  Receipt Date: 20080325
  Transmission Date: 20081010
  Serious: Yes (Other)
  Sender: FDA-Public Use
  Company Number: 2008BI007997

PATIENT
  Sex: Female

DRUGS (1)
  1. AVONEX [Suspect]
     Indication: MULTIPLE SCLEROSIS
     Dosage: IM
     Route: 030
     Dates: start: 20030314, end: 20050525

REACTIONS (5)
  - DEPRESSION [None]
  - HEPATITIS C [None]
  - JAUNDICE [None]
  - LIVER DISORDER [None]
  - NERVOUS SYSTEM DISORDER [None]
